FAERS Safety Report 20288511 (Version 1)
Quarter: 2022Q1

REPORT INFORMATION
  Report Type: Spontaneous
  Country: MX (occurrence: MX)
  Receive Date: 20220104
  Receipt Date: 20220104
  Transmission Date: 20220423
  Serious: Yes (Hospitalization)
  Sender: FDA-Public Use
  Company Number: MX-BoehringerIngelheim-2022-BI-146416

PATIENT
  Age: 58 Year
  Sex: Female

DRUGS (3)
  1. EMPAGLIFLOZIN\METFORMIN HYDROCHLORIDE [Suspect]
     Active Substance: EMPAGLIFLOZIN\METFORMIN HYDROCHLORIDE
     Indication: Product used for unknown indication
  2. TRULICITY [Suspect]
     Active Substance: DULAGLUTIDE
     Indication: Product used for unknown indication
  3. METFORMIN [Concomitant]
     Active Substance: METFORMIN HYDROCHLORIDE
     Indication: Product used for unknown indication

REACTIONS (7)
  - Vomiting [Unknown]
  - Kidney infection [Unknown]
  - Decreased appetite [Unknown]
  - Food aversion [Unknown]
  - Abdominal pain upper [Unknown]
  - Chills [Unknown]
  - Thirst decreased [Unknown]

NARRATIVE: CASE EVENT DATE: 20211201
